FAERS Safety Report 11265006 (Version 3)
Quarter: 2015Q3

REPORT INFORMATION
  Report Type: Report from Study
  Country: US (occurrence: US)
  Receive Date: 20150713
  Receipt Date: 20150911
  Transmission Date: 20151125
  Serious: No
  Sender: FDA-Public Use
  Company Number: US-AMGEN-USASP2015067632

PATIENT
  Age: 62 Year
  Sex: Female

DRUGS (1)
  1. ENBREL [Suspect]
     Active Substance: ETANERCEPT
     Indication: RHEUMATOID ARTHRITIS
     Dosage: 50 MG, WEEKLY
     Route: 065
     Dates: start: 201506

REACTIONS (8)
  - Injection site discomfort [Recovering/Resolving]
  - Injection site urticaria [Recovering/Resolving]
  - Injection site rash [Recovering/Resolving]
  - Rash [Unknown]
  - Injection site pruritus [Recovering/Resolving]
  - Visual impairment [Unknown]
  - Injection site erythema [Recovering/Resolving]
  - Injection site irritation [Unknown]

NARRATIVE: CASE EVENT DATE: 2015
